FAERS Safety Report 11683184 (Version 1)
Quarter: 2015Q4

REPORT INFORMATION
  Report Type: Spontaneous
  Country: US (occurrence: US)
  Receive Date: 20151029
  Receipt Date: 20151029
  Transmission Date: 20160304
  Serious: No
  Sender: FDA-Public Use
  Company Number: US-DSJP-DSU-2014-129552

PATIENT
  Age: 64 Year
  Sex: Male

DRUGS (1)
  1. AZOR [Suspect]
     Active Substance: AMLODIPINE BESYLATE\OLMESARTAN MEDOXOMIL
     Indication: HYPERTENSION
     Dosage: 5/20MG OR 5/40MG, QD
     Route: 048
     Dates: start: 2012, end: 201409

REACTIONS (4)
  - Therapeutic response decreased [Unknown]
  - Drug administration error [Unknown]
  - Activities of daily living impaired [Unknown]
  - Somnolence [Unknown]
